FAERS Safety Report 9413542 (Version 1)
Quarter: 2013Q2

REPORT INFORMATION
  Report Type: Spontaneous
  Country: GB (occurrence: None)
  Receive Date: 20130617
  Receipt Date: 20130617
  Transmission Date: 20140414
  Serious: Yes (Other)
  Sender: FDA-Public Use
  Company Number: 221950

PATIENT
  Sex: Female

DRUGS (1)
  1. INNOHEP (TINZAPARIN SODIUM) [Suspect]
     Indication: HAEMOFILTRATION

REACTIONS (2)
  - Dyspnoea [None]
  - Chest pain [None]
